FAERS Safety Report 7176873-9 (Version None)
Quarter: 2010Q4

REPORT INFORMATION
  Report Type: 
  Country: None (occurrence: None)
  Receive Date: 20101220
  Receipt Date: 20101213
  Transmission Date: 20110411
  Serious: Yes (Death, Other)
  Sender: FDA-Public Use
  Company Number: JP-JNJFOC-20101107298

PATIENT
  Age: 83 Year
  Sex: Female

DRUGS (1)
  1. LOPEMIN [Suspect]
     Indication: DIARRHOEA
     Route: 048

REACTIONS (3)
  - DEATH [None]
  - INTESTINAL OBSTRUCTION [None]
  - PORTAL VENOUS GAS [None]
